FAERS Safety Report 8526019-7 (Version None)
Quarter: 2012Q3

REPORT INFORMATION
  Report Type: 
  Country: None (occurrence: None)
  Receive Date: 20120720
  Receipt Date: 20100912
  Transmission Date: 20120928
  Serious: Yes (Hospitalization)
  Sender: FDA-Public Use
  Company Number: AT-ROCHE-726676

PATIENT
  Sex: Male
  Weight: 76 kg

DRUGS (6)
  1. AVASTIN [Suspect]
     Indication: COLORECTAL CANCER METASTATIC
     Dosage: 5 MG/KG, 28 DAY APPLICATION
     Route: 065
     Dates: start: 20091228, end: 20100208
  2. NAVOBAN [Concomitant]
     Route: 042
     Dates: start: 20091228, end: 20100222
  3. LEUCOVORIN CALCIUM [Suspect]
     Indication: COLON CANCER
     Dosage: DAY 1, 2, 15, 16, 28 DAY APPLICATION
     Route: 042
     Dates: start: 20091228, end: 20100222
  4. FLUOROURACIL [Suspect]
     Indication: COLON CANCER
     Dosage: DAY 1 AND DAY 15, 28 DAY APPLICATION
     Route: 042
     Dates: start: 20091228, end: 20100222
  5. FLUOROURACIL [Suspect]
     Dosage: BOLUS, 28 DAY APPLICATION
     Route: 042
     Dates: start: 20091228, end: 20100222
  6. OXALIPLATIN [Suspect]
     Indication: COLON CANCER
     Dosage: DAY 1, 2, 15, 16, 28 DAY APPLICATION
     Route: 042
     Dates: start: 20091228, end: 20100222

REACTIONS (9)
  - DRY MOUTH [None]
  - ASTHENIA [None]
  - VOMITING [None]
  - DIARRHOEA [None]
  - DECREASED APPETITE [None]
  - MUCOSAL INFLAMMATION [None]
  - LEUKOPENIA [None]
  - NAUSEA [None]
  - HAEMATOTOXICITY [None]
